FAERS Safety Report 5126359-8 (Version None)
Quarter: 2006Q4

REPORT INFORMATION
  Report Type: 
  Country: None (occurrence: None)
  Receive Date: 20061010
  Receipt Date: 20060926
  Transmission Date: 20070319
  Serious: Yes (Hospitalization)
  Sender: FDA-Public Use
  Company Number: 2006-08-1125

PATIENT
  Age: 66 Year
  Sex: Female
  Weight: 78.4723 kg

DRUGS (14)
  1. POSACONAZOLE [Suspect]
     Indication: FUNGAL INFECTION
     Dosage: 400 MG;BID
     Dates: start: 20060623, end: 20060820
  2. CIPROFLOXACIN HCL [Suspect]
     Dosage: 250 MG;BID;
  3. ATENOLOL [Concomitant]
  4. AVANDIA [Concomitant]
  5. ASPIRIN [Concomitant]
  6. ALBUTEROL SULATE [Concomitant]
  7. FISH OIL [Concomitant]
  8. GLYBURIDE [Concomitant]
  9. SYNTHROID [Concomitant]
  10. LIPITOR [Concomitant]
  11. LISINOPRIL [Concomitant]
  12. AMBIEN [Concomitant]
  13. ZOCOR [Concomitant]
  14. LACTOBACILLUS ACIDOPHILLUS [Concomitant]

REACTIONS (16)
  - ASPIRATION PLEURAL CAVITY ABNORMAL [None]
  - BLOOD ALBUMIN DECREASED [None]
  - BLOOD CREATINE INCREASED [None]
  - BLOOD POTASSIUM DECREASED [None]
  - CARDIAC FAILURE CONGESTIVE [None]
  - CONDITION AGGRAVATED [None]
  - DYSPNOEA [None]
  - ELECTROCARDIOGRAM QT CORRECTED INTERVAL PROLONGED [None]
  - ELECTROLYTE IMBALANCE [None]
  - HAEMATOCRIT DECREASED [None]
  - HAEMOGLOBIN DECREASED [None]
  - INFLAMMATION [None]
  - MYOCARDIAL INFARCTION [None]
  - PLEURAL EFFUSION [None]
  - RASH MACULAR [None]
  - SINUS BRADYCARDIA [None]
